FAERS Safety Report 6584803-3 (Version None)
Quarter: 2010Q1

REPORT INFORMATION
  Report Type: 
  Country: None (occurrence: None)
  Receive Date: 20100204
  Receipt Date: 20100122
  Transmission Date: 20100710
  Serious: Yes (Other)
  Sender: FDA-Public Use
  Company Number: 005490

PATIENT
  Age: 45 Year
  Sex: Female
  Weight: 43 kg

DRUGS (6)
  1. ACETAMINOPHEN AND CODEINE PHOSPHATE [Suspect]
  2. CITANEST [Suspect]
     Dosage: (10.5 ML TOTAL PERINEURAL), (2.5 ML TOTAL)
     Route: 053
  3. FENTANYL-100 [Suspect]
     Indication: SEDATION
     Dosage: (50 UG TOTAL INTRAVENOUS (NOT OTHERWISE SPECIFIED)
     Route: 042
  4. DALACIN C /00166004/ [Concomitant]
  5. MIDAZOLAM HCL [Concomitant]
  6. WARFARIN SODIUM [Concomitant]

REACTIONS (1)
  - BLOOD METHAEMOGLOBIN PRESENT [None]
